FAERS Safety Report 23685533 (Version 2)
Quarter: 2024Q3

REPORT INFORMATION
  Report Type: Spontaneous
  Country: MX (occurrence: MX)
  Receive Date: 20240329
  Receipt Date: 20240807
  Transmission Date: 20241016
  Serious: Yes (Other)
  Sender: SANDOZ
  Company Number: MX-002147023-NVSC2023MX146665

PATIENT
  Age: 54 Year
  Sex: Female
  Weight: 57 kg

DRUGS (6)
  1. ATORVASTATIN [Suspect]
     Active Substance: ATORVASTATIN
     Indication: Product used for unknown indication
     Dosage: UNK
     Route: 065
  2. GILENYA [Suspect]
     Active Substance: FINGOLIMOD HYDROCHLORIDE
     Indication: Multiple sclerosis
     Dosage: 0.5 MG, QD
     Route: 048
     Dates: start: 20201109
  3. CELEBREX [Concomitant]
     Active Substance: CELECOXIB
     Indication: Hernia
     Route: 065
  4. CELEBREX [Concomitant]
     Active Substance: CELECOXIB
     Indication: Intervertebral disc protrusion
  5. PREGABALIN [Concomitant]
     Active Substance: PREGABALIN
     Indication: Hernia
     Dosage: UNK
     Route: 065
  6. PREGABALIN [Concomitant]
     Active Substance: PREGABALIN
     Indication: Intervertebral disc protrusion

REACTIONS (17)
  - Multiple sclerosis relapse [Recovering/Resolving]
  - Vertigo [Unknown]
  - Confusional state [Unknown]
  - Dizziness [Recovering/Resolving]
  - Feeling abnormal [Unknown]
  - Hernia [Unknown]
  - Inflammation [Unknown]
  - Blood triglycerides increased [Not Recovered/Not Resolved]
  - Weight decreased [Not Recovered/Not Resolved]
  - Monoparesis [Unknown]
  - Gait disturbance [Recovering/Resolving]
  - Joint lock [Unknown]
  - Nail discolouration [Not Recovered/Not Resolved]
  - Spinal deformity [Unknown]
  - Arthralgia [Recovering/Resolving]
  - Asthenia [Unknown]
  - Pain in extremity [Recovering/Resolving]

NARRATIVE: CASE EVENT DATE: 20230401
